FAERS Safety Report 19197160 (Version 1)
Quarter: 2021Q2

REPORT INFORMATION
  Report Type: Other
  Country: CA (occurrence: CA)
  Receive Date: 20210430
  Receipt Date: 20210430
  Transmission Date: 20210717
  Serious: Yes (Hospitalization, Disabling, Other)
  Sender: FDA-Public Use
  Company Number: CA-CYCLE PHARMACEUTICALS LTD-2021-CYC-000008

PATIENT
  Sex: Female
  Weight: 63 kg

DRUGS (10)
  1. NITISINONE [Suspect]
     Active Substance: NITISINONE
     Indication: TYROSINAEMIA
     Dosage: 60 MG, 1 EVERY 1 DAYS
     Route: 048
  2. CITALOPRAM [Concomitant]
     Active Substance: CITALOPRAM HYDROBROMIDE
     Indication: PRODUCT USED FOR UNKNOWN INDICATION
     Dosage: UNK
     Route: 065
  3. NITISINONE [Suspect]
     Active Substance: NITISINONE
     Dosage: 57 MG, 1 EVERY 1 DAYS
     Route: 048
  4. ESCITALOPRAM [Concomitant]
     Active Substance: ESCITALOPRAM OXALATE
     Indication: PRODUCT USED FOR UNKNOWN INDICATION
     Route: 065
  5. NITISINONE [Suspect]
     Active Substance: NITISINONE
     Dosage: 55 MG, EVERY 1 DAYS
  6. DESOGESTREL AND ETHINYL ESTRADIOL [Concomitant]
     Active Substance: DESOGESTREL\ETHINYL ESTRADIOL
     Indication: PRODUCT USED FOR UNKNOWN INDICATION
     Dosage: UNK
     Route: 065
  7. NITISINONE [Suspect]
     Active Substance: NITISINONE
     Dosage: 60 MG, 1 EVERY 1 DAYS
     Route: 048
  8. NITISINONE [Suspect]
     Active Substance: NITISINONE
     Dosage: 65 MG, EVERY 1 DAYS
     Route: 048
  9. FOLIC ACID. [Concomitant]
     Active Substance: FOLIC ACID
     Indication: PRODUCT USED FOR UNKNOWN INDICATION
     Route: 065
  10. MONTELUKAST [Concomitant]
     Active Substance: MONTELUKAST SODIUM
     Indication: PRODUCT USED FOR UNKNOWN INDICATION
     Route: 065

REACTIONS (2)
  - Splenectomy [Unknown]
  - Splenic neoplasm malignancy unspecified [Unknown]
